FAERS Safety Report 9886049 (Version 1)
Quarter: 2014Q1

REPORT INFORMATION
  Report Type: Spontaneous
  Country: US (occurrence: None)
  Receive Date: 20140207
  Receipt Date: 20140207
  Transmission Date: 20141002
  Serious: No
  Sender: FDA-Public Use
  Company Number: None

PATIENT
  Age: 20 Year
  Sex: Male

DRUGS (2)
  1. KINERET [Suspect]
     Indication: RHEUMATOID ARTHRITIS
     Dosage: UNDER THE SKIN
  2. PLAQUENIL [Concomitant]

REACTIONS (6)
  - Hypersensitivity [None]
  - Skin exfoliation [None]
  - Haemorrhage [None]
  - No therapeutic response [None]
  - Pruritus [None]
  - Rash [None]
